FAERS Safety Report 11579604 (Version 3)
Quarter: 2016Q1

REPORT INFORMATION
  Report Type: Spontaneous
  Country: BR (occurrence: BR)
  Receive Date: 20150930
  Receipt Date: 20160212
  Transmission Date: 20160525
  Serious: Yes (Other)
  Sender: FDA-Public Use
  Company Number: BR-ELI_LILLY_AND_COMPANY-BR201509006518

PATIENT
  Sex: Female
  Weight: 70 kg

DRUGS (7)
  1. LANTUS [Concomitant]
     Active Substance: INSULIN GLARGINE
     Dosage: UNK, UNKNOWN
     Route: 065
  2. A-VITAMIN [Concomitant]
     Indication: NEURITIS
  3. HUMALOG [Suspect]
     Active Substance: INSULIN LISPRO
     Indication: PRODUCT USED FOR UNKNOWN INDICATION
     Dosage: 10 IU, PRN
     Route: 058
  4. LOSARTAN. [Concomitant]
     Active Substance: LOSARTAN
     Indication: HYPERTENSION
     Dosage: UNK, UNKNOWN
     Route: 065
  5. CAPTOPRIL. [Concomitant]
     Active Substance: CAPTOPRIL
     Indication: HYPERTENSION
     Dosage: UNK, UNKNOWN
     Route: 065
  6. A-VITAMIN [Concomitant]
     Indication: PAIN IN EXTREMITY
     Dosage: UNK, UNKNOWN
     Route: 065
  7. ADERMINA [Concomitant]
     Indication: NEURITIS
     Dosage: UNK, UNKNOWN
     Route: 065

REACTIONS (13)
  - Neuritis [Unknown]
  - Pyrexia [Recovered/Resolved]
  - Hypertension [Unknown]
  - Diabetic neuropathy [Unknown]
  - Diabetic retinopathy [Unknown]
  - Blindness [Unknown]
  - Polycystic ovaries [Unknown]
  - Retinal detachment [Unknown]
  - Blood glucose increased [Unknown]
  - Cervix dystocia [Unknown]
  - Cough [Unknown]
  - Haemolysis [Recovered/Resolved]
  - Exposure during pregnancy [Unknown]
